FAERS Safety Report 20738990 (Version 3)
Quarter: 2022Q4

REPORT INFORMATION
  Report Type: Other
  Country: US (occurrence: None)
  Receive Date: 20220422
  Receipt Date: 20221009
  Transmission Date: 20230113
  Serious: Yes (Other)
  Sender: FDA-Public Use
  Company Number: US-ROCHE-3030826

PATIENT
  Sex: Female

DRUGS (4)
  1. ACTEMRA [Suspect]
     Active Substance: TOCILIZUMAB
     Indication: Giant cell arteritis
     Route: 058
  2. ACTEMRA [Suspect]
     Active Substance: TOCILIZUMAB
  3. ACTEMRA [Suspect]
     Active Substance: TOCILIZUMAB
     Indication: Giant cell arteritis
     Route: 058
  4. ACTEMRA [Suspect]
     Active Substance: TOCILIZUMAB

REACTIONS (13)
  - Vascular dementia [Unknown]
  - Dementia Alzheimer^s type [Unknown]
  - Paraesthesia [Unknown]
  - Nasopharyngitis [Unknown]
  - Bone lesion [Unknown]
  - Glycosylated haemoglobin increased [Unknown]
  - High density lipoprotein increased [Unknown]
  - Low density lipoprotein increased [Unknown]
  - Blood calcium increased [Unknown]
  - Blood glucose increased [Unknown]
  - Proteinuria [Unknown]
  - Prothrombin level decreased [Unknown]
  - Osteopenia [Unknown]
